FAERS Safety Report 11440686 (Version 3)
Quarter: 2015Q3

REPORT INFORMATION
  Report Type: Other
  Country: GB (occurrence: GB)
  Receive Date: 20150901
  Receipt Date: 20150930
  Transmission Date: 20151125
  Serious: Yes (Other)
  Sender: FDA-Public Use
  Company Number: GB-MYLANLABS-2015M1028526

PATIENT

DRUGS (7)
  1. OLANZAPINE. [Suspect]
     Active Substance: OLANZAPINE
     Indication: PRODUCT USED FOR UNKNOWN INDICATION
     Dosage: UNK
     Route: 065
  2. CLOZARIL [Suspect]
     Active Substance: CLOZAPINE
     Indication: SCHIZOPHRENIA
     Dosage: UNK
     Route: 048
     Dates: start: 20060505
  3. CLOZARIL [Suspect]
     Active Substance: CLOZAPINE
     Dosage: 550 MG, QD (550 MG, QD)
     Route: 048
     Dates: start: 2007, end: 20150722
  4. OMEPRAZOLE. [Concomitant]
     Active Substance: OMEPRAZOLE
     Indication: DYSPEPSIA
     Dosage: 20 MG, QD (20 MG, QD)
     Route: 048
     Dates: start: 2012
  5. DIAZEPAM. [Concomitant]
     Active Substance: DIAZEPAM
     Indication: ANXIETY
     Dosage: 100 MG, BID (100 MG, BID)
     Route: 048
     Dates: start: 2010
  6. SODIUM VALPROATE [Concomitant]
     Active Substance: VALPROATE SODIUM
     Indication: SCHIZOPHRENIA
     Dosage: 1 G, BID
     Route: 048
     Dates: start: 2007
  7. SERTRALINE                         /01011402/ [Concomitant]
     Active Substance: SERTRALINE HYDROCHLORIDE
     Indication: DEPRESSION
     Dosage: 100 MG, QD (100 MG, QD)
     Route: 048
     Dates: start: 2014

REACTIONS (13)
  - Vomiting [Recovering/Resolving]
  - Delusion [Unknown]
  - General physical health deterioration [Unknown]
  - Hallucination [Unknown]
  - Diarrhoea [Recovering/Resolving]
  - White blood cell count decreased [Recovered/Resolved]
  - Malaise [Recovering/Resolving]
  - Neutrophil count decreased [Recovered/Resolved]
  - Schizophrenia [Unknown]
  - Thinking abnormal [Unknown]
  - Haemoglobin decreased [Not Recovered/Not Resolved]
  - White blood cell count increased [Unknown]
  - Mental disorder [Unknown]

NARRATIVE: CASE EVENT DATE: 20150722
